FAERS Safety Report 12170741 (Version 1)
Quarter: 2016Q1

REPORT INFORMATION
  Report Type: Report from Study
  Country: US (occurrence: US)
  Receive Date: 20160311
  Receipt Date: 20160311
  Transmission Date: 20160526
  Serious: Yes (Other)
  Sender: FDA-Public Use
  Company Number: US-AMGEN-USASL2016028974

PATIENT
  Age: 43 Year
  Sex: Female

DRUGS (1)
  1. ENBREL [Suspect]
     Active Substance: ETANERCEPT
     Indication: PRODUCT USED FOR UNKNOWN INDICATION
     Dosage: UNK
     Route: 065

REACTIONS (7)
  - Oropharyngeal pain [Unknown]
  - Drug effect variable [Unknown]
  - Pyrexia [Unknown]
  - Fatigue [Unknown]
  - Eosinophilic fasciitis [Unknown]
  - Influenza [Unknown]
  - Inflammation [Unknown]

NARRATIVE: CASE EVENT DATE: 201602
